FAERS Safety Report 21605666 (Version 1)
Quarter: 2022Q4

REPORT INFORMATION
  Report Type: Report from Study
  Country: US (occurrence: US)
  Receive Date: 20221116
  Receipt Date: 20221116
  Transmission Date: 20230113
  Serious: Yes (Other)
  Sender: FDA-Public Use
  Company Number: US-JNJFOC-20221127010

PATIENT
  Sex: Male

DRUGS (1)
  1. RIVAROXABAN [Suspect]
     Active Substance: RIVAROXABAN
     Indication: Product used for unknown indication
     Route: 048
     Dates: start: 2017

REACTIONS (4)
  - Haemorrhage [Unknown]
  - Cerebrovascular accident [Unknown]
  - Chest pain [Unknown]
  - Arterial disorder [Unknown]

NARRATIVE: CASE EVENT DATE: 20220101
